FAERS Safety Report 13898422 (Version 1)
Quarter: 2017Q3

REPORT INFORMATION
  Report Type: Spontaneous
  Country: US (occurrence: US)
  Receive Date: 20170823
  Receipt Date: 20170823
  Transmission Date: 20171127
  Serious: No
  Sender: FDA-Public Use
  Company Number: US-INCYTE CORPORATION-2017IN006949

PATIENT

DRUGS (1)
  1. JAKAFI [Suspect]
     Active Substance: RUXOLITINIB
     Indication: LEUKAEMIA
     Dosage: NOT SPECIFIED
     Route: 048

REACTIONS (3)
  - Arthralgia [Recovering/Resolving]
  - Off label use [Unknown]
  - Gait disturbance [Recovering/Resolving]
